FAERS Safety Report 4742554-1 (Version None)
Quarter: 2005Q3

REPORT INFORMATION
  Report Type: 
  Country: None (occurrence: None)
  Receive Date: 20050808
  Receipt Date: 20050725
  Transmission Date: 20060218
  Serious: Yes (Life-Threatening, Hospitalization, Other)
  Sender: FDA-Public Use
  Company Number: 19614

PATIENT
  Sex: Female
  Weight: 59.8748 kg

DRUGS (14)
  1. ADRIAMYCIN (DOXORUBICIN) INJ. USP 50MG/25ML- BEN VENUE LABS, INC. [Suspect]
     Indication: BREAST CANCER
     Dosage: 99 MG IV
     Route: 042
     Dates: start: 20050706
  2. CYTOXAN (BRISTOL-MYERS SQUIBB) [Suspect]
     Indication: BREAST CANCER
     Dosage: 990 MG/ IV
     Route: 042
     Dates: start: 20050706
  3. LISINOPRIL [Concomitant]
  4. SYNTHROID [Concomitant]
  5. DARVOCET [Concomitant]
  6. VITAMIN B6 [Concomitant]
  7. IMDUR [Concomitant]
  8. FLOVENT [Concomitant]
  9. STANFORD SOLUTION [Concomitant]
  10. DECADRON [Concomitant]
  11. ALOXI [Concomitant]
  12. EMEND [Concomitant]
  13. ARANESP [Concomitant]
  14. NEULASTA [Concomitant]

REACTIONS (3)
  - DIALYSIS [None]
  - HAEMOLYTIC URAEMIC SYNDROME [None]
  - THROMBOTIC THROMBOCYTOPENIC PURPURA [None]
